FAERS Safety Report 7690332-6 (Version None)
Quarter: 2011Q3

REPORT INFORMATION
  Report Type: 
  Country: None (occurrence: None)
  Receive Date: 20110818
  Receipt Date: 20110808
  Transmission Date: 20111222
  Serious: Yes (Hospitalization)
  Sender: FDA-Public Use
  Company Number: CA-JNJFOC-20110605842

PATIENT
  Sex: Female
  Weight: 64.4 kg

DRUGS (3)
  1. REMICADE [Suspect]
     Indication: CROHN'S DISEASE
     Route: 042
     Dates: start: 20100715
  2. METHOTREXATE [Concomitant]
     Route: 065
  3. NUVARING [Concomitant]
     Route: 065

REACTIONS (2)
  - CROHN'S DISEASE [None]
  - ABSCESS [None]
